FAERS Safety Report 23454724 (Version 2)
Quarter: 2024Q1

REPORT INFORMATION
  Report Type: Spontaneous
  Country: GB (occurrence: GB)
  Receive Date: 20240130
  Receipt Date: 20240214
  Transmission Date: 20240410
  Serious: Yes (Other)
  Sender: FDA-Public Use
  Company Number: GB-UCBSA-2024003555

PATIENT
  Sex: Female

DRUGS (5)
  1. VIMPAT [Suspect]
     Active Substance: LACOSAMIDE
     Indication: Epilepsy
     Dosage: 200 MILLIGRAM, UNK
     Dates: start: 202006
  2. KEPPRA [Suspect]
     Active Substance: LEVETIRACETAM
     Indication: Product used for unknown indication
  3. BRIVIACT [Suspect]
     Active Substance: BRIVARACETAM
     Indication: Product used for unknown indication
     Dosage: UNK
  4. TOPIRAMATE [Concomitant]
     Active Substance: TOPIRAMATE
     Indication: Product used for unknown indication
     Dosage: UNK
  5. TOPIRAMATE [Concomitant]
     Active Substance: TOPIRAMATE
     Dosage: WEANING DOSE

REACTIONS (3)
  - Hemiplegia [Not Recovered/Not Resolved]
  - Seizure [Not Recovered/Not Resolved]
  - Change in seizure presentation [Not Recovered/Not Resolved]
